FAERS Safety Report 4711266-2 (Version None)
Quarter: 2005Q3

REPORT INFORMATION
  Report Type: 
  Country: None (occurrence: None)
  Receive Date: 20050711
  Receipt Date: 20050629
  Transmission Date: 20060218
  Serious: Yes (Other)
  Sender: FDA-Public Use
  Company Number: 05-06-1135

PATIENT
  Age: 79 Year
  Sex: Female

DRUGS (14)
  1. CIPROFLOXACIN [Suspect]
     Indication: WOUND INFECTION
     Dosage: 500MG BID ORAL
     Route: 048
  2. LEVOTHYROXINE [Suspect]
     Indication: HYPOTHYROIDISM
     Dosage: 150UG QD ORAL
     Route: 048
  3. ZUCLOPENTHIXOL [Concomitant]
  4. ENALAPRIL MALEATE [Concomitant]
  5. BUMETANIDE [Concomitant]
  6. PREDNISOLONE [Concomitant]
  7. FOLIC ACID [Concomitant]
  8. LACTULOSE [Concomitant]
  9. ACETYLCYSTEINE [Concomitant]
  10. HYDROXYCHLOROQUINE SULFATE [Concomitant]
  11. ACETAMINOPHEN [Concomitant]
  12. IPRATROPIUM BROMIDE [Concomitant]
  13. SALBUTAMOL [Concomitant]
  14. NYSTATIN [Concomitant]

REACTIONS (4)
  - BLOOD THYROID STIMULATING HORMONE INCREASED [None]
  - LEG AMPUTATION [None]
  - POSTOPERATIVE INFECTION [None]
  - THYROXINE FREE DECREASED [None]
